FAERS Safety Report 4754335-3 (Version None)
Quarter: 2005Q3

REPORT INFORMATION
  Report Type: 
  Country: None (occurrence: None)
  Receive Date: 20050825
  Receipt Date: 20050825
  Transmission Date: 20060218
  Serious: No
  Sender: FDA-Public Use
  Company Number: None

PATIENT
  Sex: Female
  Weight: 80.7403 kg

DRUGS (2)
  1. ABILIFY [Suspect]
     Indication: SCHIZOPHRENIA
     Dosage: 15 MG    2 TABS QAM  PO
     Route: 048
     Dates: start: 20041019, end: 20050822
  2. RISPERDAL [Suspect]
     Dosage: 1 MG    1 TAB BID   PO
     Route: 048
     Dates: start: 19990813, end: 20030917

REACTIONS (1)
  - DIABETES MELLITUS [None]
